FAERS Safety Report 4895061-X (Version None)
Quarter: 2006Q1

REPORT INFORMATION
  Report Type: 
  Country: None (occurrence: None)
  Receive Date: 20060130
  Receipt Date: 20051215
  Transmission Date: 20060701
  Serious: Yes (Hospitalization)
  Sender: FDA-Public Use
  Company Number: FR-BRISTOL-MYERS SQUIBB COMPANY-13261011

PATIENT
  Age: 75 Year
  Sex: Female

DRUGS (12)
  1. VASTEN TABS 20 MG [Suspect]
     Route: 048
  2. SOLU-MEDROL [Suspect]
     Route: 048
  3. ARAVA [Suspect]
     Route: 048
  4. LEXOMIL [Suspect]
     Route: 048
  5. ALLOPURINOL [Suspect]
     Route: 048
  6. STABLON [Suspect]
     Route: 048
  7. COVERSYL [Concomitant]
  8. SELOKEN [Concomitant]
  9. COUMADIN [Concomitant]
  10. NEXIUM [Concomitant]
  11. STILNOX [Concomitant]
  12. ENTOCORT [Concomitant]
     Dates: end: 20051001

REACTIONS (3)
  - DYSPNOEA [None]
  - INTERSTITIAL LUNG DISEASE [None]
  - PYREXIA [None]
